FAERS Safety Report 5009234-9 (Version None)
Quarter: 2006Q2

REPORT INFORMATION
  Report Type: 
  Country: None (occurrence: None)
  Receive Date: 20060519
  Receipt Date: 20060513
  Transmission Date: 20061013
  Serious: Yes (Death, Other)
  Sender: FDA-Public Use
  Company Number: VN-2006-009495

PATIENT
  Age: 74 Year
  Sex: Male

DRUGS (1)
  1. ULTRAVIST 300 [Suspect]
     Indication: UROGRAM
     Dosage: 50 ML, 1 DOSE, INTRAVENOUS
     Route: 042
     Dates: start: 20060217, end: 20060217

REACTIONS (15)
  - ALANINE AMINOTRANSFERASE INCREASED [None]
  - ANAPHYLACTIC SHOCK [None]
  - ASPARTATE AMINOTRANSFERASE INCREASED [None]
  - BLOOD CHLORIDE INCREASED [None]
  - BLOOD CREATININE INCREASED [None]
  - BLOOD PRESSURE SYSTOLIC INCREASED [None]
  - BLOOD SODIUM INCREASED [None]
  - CHILLS [None]
  - COMA [None]
  - CONVULSIONS LOCAL [None]
  - EYELID FUNCTION DISORDER [None]
  - HYPOTENSION [None]
  - PYREXIA [None]
  - THERAPY NON-RESPONDER [None]
  - WHITE BLOOD CELL COUNT INCREASED [None]
